FAERS Safety Report 26187787 (Version 1)
Quarter: 2025Q4

REPORT INFORMATION
  Report Type: Spontaneous
  Country: US (occurrence: US)
  Receive Date: 20251222
  Receipt Date: 20251222
  Transmission Date: 20260118
  Serious: No
  Sender: MYLAN
  Company Number: US-MYLANLABS-2025M1107080

PATIENT
  Sex: Female
  Weight: 63.05 kg

DRUGS (1)
  1. ESTRADIOL TRANSDERMAL SYSTEM [Suspect]
     Active Substance: ESTRADIOL
     Indication: Product used for unknown indication
     Dosage: 0.1 MILLIGRAM, QD (PER DAY, EVERY 48 HOURS)

REACTIONS (8)
  - Arthralgia [Unknown]
  - Hot flush [Unknown]
  - Insomnia [Unknown]
  - Irritability [Unknown]
  - Symptom recurrence [Unknown]
  - Drug ineffective [Unknown]
  - Product prescribing error [Unknown]
  - Product adhesion issue [Unknown]
